FAERS Safety Report 20467245 (Version 2)
Quarter: 2022Q4

REPORT INFORMATION
  Report Type: Other
  Country: US (occurrence: None)
  Receive Date: 20220214
  Receipt Date: 20221102
  Transmission Date: 20230113
  Serious: Yes (Other)
  Sender: FDA-Public Use
  Company Number: US-ROCHE-3020105

PATIENT
  Age: 44 Year
  Sex: Female
  Weight: 61.290 kg

DRUGS (14)
  1. ENSPRYNG [Suspect]
     Active Substance: SATRALIZUMAB-MWGE
     Indication: Neuromyelitis optica spectrum disorder
     Dosage: 120 MG EVERY 14 DAYS TIMES 3, THEN 120 MG EVERY MONTH ;ONGOING: YES
     Route: 058
     Dates: start: 20220121
  2. PREDNISONE [Concomitant]
     Active Substance: PREDNISONE
     Dosage: 40 MG EVERY DAY BY MOUTH
  3. CALCIUM [Concomitant]
     Active Substance: CALCIUM
     Dosage: 1000 MG EVERY DAY BY MOUTH
  4. ACECLOFENAC\ACETAMINOPHEN [Concomitant]
     Active Substance: ACECLOFENAC\ACETAMINOPHEN
     Dosage: 20 MG EVERY DAY BY MOUTH
  5. VITAMIN D3 [Concomitant]
     Active Substance: CHOLECALCIFEROL
     Dosage: 2000 MG EVERY DAY BY MOUTH
  6. CLONAZEPAM [Concomitant]
     Active Substance: CLONAZEPAM
     Dosage: 2 MG EVERY NIGHT BY MOUTH
  7. REMERON [Concomitant]
     Active Substance: MIRTAZAPINE
     Dosage: 60 MG EVERY NIGHT BY MOUTH
  8. SEROQUEL [Concomitant]
     Active Substance: QUETIAPINE FUMARATE
     Dosage: 100 MG EVERY NIGHT BY MOUTH
  9. MELATONIN [Concomitant]
     Active Substance: MELATONIN
     Dosage: 12 MG EVERY NIGHT BY MOUTH AS NEEDED
  10. PEPCID [Concomitant]
     Active Substance: FAMOTIDINE
     Dosage: 20 MG EVERY DAY BY MOUTH
  11. SEPTRA DS [Concomitant]
     Active Substance: SULFAMETHOXAZOLE\TRIMETHOPRIM
     Dosage: 800MG/160MG TAB, 3 TIMES A WEEK BY MOUTH
  12. FLONASE [Concomitant]
     Active Substance: FLUTICASONE PROPIONATE
     Dosage: 2 SPRAYS EACH NOSTRIL EVERY DAY
  13. ALLEGRA [Concomitant]
     Active Substance: FEXOFENADINE HYDROCHLORIDE
     Dosage: 180 MG EVERY DAY BY MOUTH
  14. XANAX [Concomitant]
     Active Substance: ALPRAZOLAM
     Dosage: 0.5 MG ONCE A DAY BY MOUTH AS NEEDED

REACTIONS (5)
  - Cough [Not Recovered/Not Resolved]
  - Arthralgia [Not Recovered/Not Resolved]
  - Nausea [Not Recovered/Not Resolved]
  - Fatigue [Unknown]
  - Arthralgia [Not Recovered/Not Resolved]

NARRATIVE: CASE EVENT DATE: 20220122
